FAERS Safety Report 7797982-7 (Version None)
Quarter: 2011Q4

REPORT INFORMATION
  Report Type: 
  Country: None (occurrence: None)
  Receive Date: 20111005
  Receipt Date: 20110927
  Transmission Date: 20120403
  Serious: Yes (Other)
  Sender: FDA-Public Use
  Company Number: JP-GLAXOSMITHKLINE-B0741198A

PATIENT
  Sex: Male
  Weight: 75 kg

DRUGS (13)
  1. LAMICTAL [Suspect]
     Dosage: 50MG PER DAY
     Route: 048
     Dates: start: 20110725, end: 20110807
  2. CLONAZEPAM [Concomitant]
     Dosage: 2MG PER DAY
     Route: 048
     Dates: start: 20110711
  3. SEROQUEL [Concomitant]
     Dosage: 200MG PER DAY
     Route: 048
     Dates: start: 20110711
  4. AMOBAN [Concomitant]
     Dosage: 10MG PER DAY
     Route: 048
     Dates: start: 20110711
  5. LAMICTAL [Suspect]
     Dosage: 100MG PER DAY
     Route: 048
     Dates: start: 20110808, end: 20110816
  6. LITHIUM CARBONATE [Concomitant]
     Dosage: 800MG PER DAY
     Route: 048
     Dates: start: 20110711
  7. RONFLEMAN [Concomitant]
     Dosage: .25MG PER DAY
     Route: 048
     Dates: start: 20110711
  8. SENNOSIDE [Concomitant]
     Dosage: 24MG PER DAY
     Route: 048
     Dates: start: 20110711
  9. LAMICTAL [Suspect]
     Indication: BIPOLAR DISORDER
     Dosage: 25MG PER DAY
     Route: 048
     Dates: start: 20110711, end: 20110724
  10. NITRAZEPAM [Concomitant]
     Dosage: 10MG PER DAY
     Route: 048
     Dates: start: 20110711
  11. SENNOSIDE [Concomitant]
     Dosage: 24MG PER DAY
     Route: 048
     Dates: start: 20110821
  12. TOLEDOMIN [Concomitant]
     Dosage: 100MG PER DAY
     Route: 048
     Dates: start: 20110711
  13. PANTOSIN [Concomitant]
     Dosage: 300MG PER DAY
     Route: 048
     Dates: start: 20110711

REACTIONS (4)
  - CHEILITIS [None]
  - CHAPPED LIPS [None]
  - RASH GENERALISED [None]
  - GLOSSITIS [None]
